FAERS Safety Report 18078340 (Version 4)
Quarter: 2020Q4

REPORT INFORMATION
  Report Type: Report from Study
  Country: US (occurrence: US)
  Receive Date: 20200727
  Receipt Date: 20201205
  Transmission Date: 20210113
  Serious: No
  Sender: FDA-Public Use
  Company Number: NVSC2020US208592

PATIENT
  Sex: Female

DRUGS (1)
  1. PIQRAY [Suspect]
     Active Substance: ALPELISIB
     Indication: PRODUCT USED FOR UNKNOWN INDICATION
     Dosage: UNK
     Route: 048

REACTIONS (11)
  - Diarrhoea [Unknown]
  - Fatigue [Unknown]
  - Decreased appetite [Unknown]
  - Dry skin [Unknown]
  - Weight decreased [Unknown]
  - Oral pain [Unknown]
  - Illness [Unknown]
  - Feeding disorder [Unknown]
  - Dry mouth [Unknown]
  - Dry eye [Unknown]
  - Abdominal discomfort [Unknown]
